FAERS Safety Report 20205850 (Version 1)
Quarter: 2021Q4

REPORT INFORMATION
  Report Type: Spontaneous
  Country: US (occurrence: None)
  Receive Date: 20211217
  Receipt Date: 20211217
  Transmission Date: 20220304
  Serious: Yes (Other)
  Sender: FDA-Public Use
  Company Number: None

PATIENT
  Age: 56 Year
  Sex: Female

DRUGS (1)
  1. ENBREL [Suspect]
     Active Substance: ETANERCEPT
     Indication: Psoriasis
     Dosage: FREQUENCY : WEEKLY;?
     Route: 058
     Dates: start: 20210828, end: 20211117

REACTIONS (4)
  - Upper respiratory tract infection [None]
  - Wheezing [None]
  - Cough [None]
  - Hypersomnia [None]

NARRATIVE: CASE EVENT DATE: 20211217
